FAERS Safety Report 11734135 (Version 1)
Quarter: 2015Q4

REPORT INFORMATION
  Report Type: Spontaneous
  Country: US (occurrence: None)
  Receive Date: 20151112
  Receipt Date: 20151112
  Transmission Date: 20160304
  Serious: Yes (Hospitalization)
  Sender: FDA-Public Use
  Company Number: None

PATIENT
  Age: 63 Year
  Sex: Male

DRUGS (13)
  1. LACTULOSE. [Concomitant]
     Active Substance: LACTULOSE
  2. FLUTICASONE PROPIONATE. [Concomitant]
     Active Substance: FLUTICASONE PROPIONATE
  3. MUCINEX [Concomitant]
     Active Substance: GUAIFENESIN
  4. OMEPRAZOLE. [Concomitant]
     Active Substance: OMEPRAZOLE
  5. SPIRONOLACTONE. [Concomitant]
     Active Substance: SPIRONOLACTONE
  6. TAMSULOSIN HCL [Concomitant]
     Active Substance: TAMSULOSIN
  7. VIEKIRA PAK [Suspect]
     Active Substance: DASABUVIR\OMBITASVIR\PARITAPREVIR\RITONAVIR
     Indication: HEPATITIS C
     Dosage: 2 PINK, ONE BEIGE AM, 1 BEIGE PM. 3 IN AM/1 PM
     Route: 048
  8. RIBAVIRIN. [Concomitant]
     Active Substance: RIBAVIRIN
  9. BUPROPION HCL ER [Concomitant]
     Active Substance: BUPROPION HYDROCHLORIDE
  10. MULTIVITAMINS [Concomitant]
     Active Substance: VITAMINS
  11. ONDANSETRON ODT [Concomitant]
     Active Substance: ONDANSETRON
  12. TRILYTE [Concomitant]
     Active Substance: POLYETHYLENE GLYCOL 3350\POTASSIUM CHLORIDE\SODIUM BICARBONATE\SODIUM CHLORIDE
  13. XIFAXAN [Concomitant]
     Active Substance: RIFAXIMIN

REACTIONS (2)
  - Hepatic neoplasm [None]
  - Hepatic encephalopathy [None]

NARRATIVE: CASE EVENT DATE: 20151111
